FAERS Safety Report 8853201 (Version 1)
Quarter: 2012Q4

REPORT INFORMATION
  Report Type: 
  Country: US (occurrence: US)
  Receive Date: 20121022
  Receipt Date: 20121022
  Transmission Date: 20130627
  Serious: No
  Sender: FDA-Public Use
  Company Number: US-PFIZER INC-2012258673

PATIENT
  Age: 49 Year
  Sex: Male
  Weight: 90.7 kg

DRUGS (1)
  1. BOSULIF [Suspect]
     Indication: CHRONIC MYELOID LEUKAEMIA
     Dosage: 500 mg, 1x/day
     Route: 048
     Dates: start: 20121012

REACTIONS (1)
  - Diarrhoea [Recovered/Resolved]
